FAERS Safety Report 9192972 (Version 1)
Quarter: 2013Q1

REPORT INFORMATION
  Report Type: Spontaneous
  Country: US (occurrence: None)
  Receive Date: 20120703
  Receipt Date: 20120703
  Transmission Date: 20140127
  Serious: Yes (Other)
  Sender: FDA-Public Use
  Company Number: PHEH2012US006984

PATIENT
  Age: 39 Year
  Sex: Male
  Weight: 79.4 kg

DRUGS (1)
  1. GILENYA [Suspect]
     Indication: MULTIPLE SCLEROSIS
     Route: 048
     Dates: start: 20111003, end: 20120208

REACTIONS (2)
  - Lung infection [None]
  - Heart rate decreased [None]
